FAERS Safety Report 25546158 (Version 2)
Quarter: 2025Q3

REPORT INFORMATION
  Report Type: Spontaneous
  Country: GB (occurrence: GB)
  Receive Date: 20250713
  Receipt Date: 20250802
  Transmission Date: 20251021
  Serious: Yes (Hospitalization, Other)
  Sender: AUROBINDO
  Company Number: GB-IPSEN Group, Research and Development-2024-02543

PATIENT
  Age: 62 Year
  Sex: Male
  Weight: 92 kg

DRUGS (19)
  1. SUNITINIB [Suspect]
     Active Substance: SUNITINIB
     Indication: Product used for unknown indication
     Route: 065
  2. RAMIPRIL [Suspect]
     Active Substance: RAMIPRIL
     Indication: Acute myocardial infarction
     Route: 048
  3. RAMIPRIL [Suspect]
     Active Substance: RAMIPRIL
     Route: 048
  4. DAPAGLIFLOZIN [Suspect]
     Active Substance: DAPAGLIFLOZIN
     Indication: Acute myocardial infarction
     Dosage: 10 MILLIGRAM, ONCE A DAY
     Route: 048
  5. CABOMETYX [Suspect]
     Active Substance: CABOZANTINIB S-MALATE
     Indication: Gastrointestinal stromal tumour
     Dosage: 60 MILLIGRAM, ONCE A DAY (DAILY)
     Route: 048
     Dates: start: 20231212, end: 20240116
  6. CABOMETYX [Suspect]
     Active Substance: CABOZANTINIB S-MALATE
     Dosage: 40 MILLIGRAM, ONCE A DAY (DAILY)
     Route: 048
     Dates: start: 20240206
  7. IMATINIB [Suspect]
     Active Substance: IMATINIB
     Indication: Product used for unknown indication
     Route: 065
  8. REGORAFENIB [Suspect]
     Active Substance: REGORAFENIB
     Indication: Product used for unknown indication
     Route: 065
  9. ASPIRIN [Concomitant]
     Active Substance: ASPIRIN
     Indication: Myocardial infarction
     Route: 048
  10. ATORVASTATIN CALCIUM [Concomitant]
     Active Substance: ATORVASTATIN CALCIUM
     Indication: Myocardial infarction
     Route: 048
  11. BETAHISTINE HYDROCHLORIDE [Concomitant]
     Active Substance: BETAHISTINE HYDROCHLORIDE
     Indication: Vertigo
     Route: 048
  12. BISOPROLOL FUMARATE [Concomitant]
     Active Substance: BISOPROLOL FUMARATE
     Indication: Acute myocardial infarction
     Route: 048
  13. CALCIUM CARBONATE [Concomitant]
     Active Substance: CALCIUM CARBONATE
     Indication: Blood calcium decreased
     Route: 048
  14. AMOXICILLIN\CLAVULANATE POTASSIUM [Concomitant]
     Active Substance: AMOXICILLIN\CLAVULANATE POTASSIUM
     Indication: Pneumonia
     Route: 048
     Dates: start: 20220905
  15. EZETIMIBE [Concomitant]
     Active Substance: EZETIMIBE
     Indication: Immunoglobulins abnormal
     Route: 048
  16. IVABRADINE HYDROCHLORIDE [Concomitant]
     Active Substance: IVABRADINE HYDROCHLORIDE
     Indication: Acute myocardial infarction
     Route: 048
  17. LANSOPRAZOLE [Concomitant]
     Active Substance: LANSOPRAZOLE
     Indication: Antiplatelet therapy
     Route: 048
  18. TICAGRELOR [Concomitant]
     Active Substance: TICAGRELOR
     Indication: Acute myocardial infarction
     Route: 048
  19. DOXYCYCLINE [Concomitant]
     Active Substance: DOXYCYCLINE
     Indication: Product used for unknown indication
     Route: 065

REACTIONS (7)
  - Malignant neoplasm progression [Unknown]
  - Syncope [Recovered/Resolved]
  - Blister [Recovered/Resolved]
  - Toxicity to various agents [Unknown]
  - Off label use [Unknown]
  - Product dose omission issue [Unknown]
  - Product distribution issue [Unknown]

NARRATIVE: CASE EVENT DATE: 20220825
